FAERS Safety Report 22654937 (Version 4)
Quarter: 2023Q4

REPORT INFORMATION
  Report Type: Report from Study
  Country: US (occurrence: None)
  Receive Date: 20230629
  Receipt Date: 20231108
  Transmission Date: 20240110
  Serious: Yes (Life-Threatening, Hospitalization)
  Sender: FDA-Public Use
  Company Number: US-ROCHE-3346634

PATIENT
  Age: 49 Year
  Sex: Female
  Weight: 58.8 kg

DRUGS (15)
  1. PLACEBO [Suspect]
     Active Substance: UNSPECIFIED INGREDIENT
     Indication: Primary progressive multiple sclerosis
     Dosage: START DATE OF MOST RECENT DOSE OF STUDY DRUG PRIOR TO AE ON 05/MAY/2023
     Route: 048
     Dates: start: 20230126
  2. OCRELIZUMAB [Suspect]
     Active Substance: OCRELIZUMAB
     Indication: Primary progressive multiple sclerosis
     Dosage: START DATE OF MOST RECENT DOSE OF STUDY DRUG PRIOR TO AE ON 09/FEB/2023
     Route: 042
     Dates: start: 20230126
  3. VITAMINS [Concomitant]
     Active Substance: VITAMINS
     Route: 048
  4. YASMIN [Concomitant]
     Active Substance: DROSPIRENONE\ETHINYL ESTRADIOL
     Indication: Contraception
     Route: 048
     Dates: start: 2001
  5. GEMTESA [Concomitant]
     Active Substance: VIBEGRON
     Indication: Micturition urgency
     Route: 048
     Dates: start: 202207
  6. MACRODANTIN [Concomitant]
     Active Substance: NITROFURANTOIN
     Indication: Urinary tract infection
     Route: 048
     Dates: start: 2011
  7. MELOXICAM [Concomitant]
     Active Substance: MELOXICAM
     Indication: Neuralgia
     Dates: start: 2018
  8. AMPYRA [Concomitant]
     Active Substance: DALFAMPRIDINE
     Indication: Muscle disorder
     Route: 048
     Dates: start: 2012
  9. TRAZODONE [Concomitant]
     Active Substance: TRAZODONE HYDROCHLORIDE
     Indication: Sleep disorder
     Route: 048
     Dates: start: 2020
  10. CYMBALTA [Concomitant]
     Active Substance: DULOXETINE HYDROCHLORIDE
     Indication: Depression
     Route: 048
     Dates: start: 20230315
  11. CEPHALEXIN [Concomitant]
     Active Substance: CEPHALEXIN
     Indication: Infection
     Route: 048
     Dates: start: 20230429
  12. LOVENOX [Concomitant]
     Active Substance: ENOXAPARIN SODIUM
     Indication: Thrombosis
     Route: 030
     Dates: start: 20230506, end: 20230506
  13. LOPERAMIDE [Concomitant]
     Active Substance: LOPERAMIDE
     Indication: Diarrhoea
     Route: 048
     Dates: start: 20230510
  14. BUDESONIDE [Concomitant]
     Active Substance: BUDESONIDE
     Indication: Colitis microscopic
     Route: 048
     Dates: start: 20230512
  15. CHOLESTYRAMINE [Concomitant]
     Active Substance: CHOLESTYRAMINE
     Indication: Colitis microscopic
     Route: 048
     Dates: start: 20230510

REACTIONS (2)
  - Venous thrombosis [Recovering/Resolving]
  - Colitis microscopic [Unknown]

NARRATIVE: CASE EVENT DATE: 20230420
